FAERS Safety Report 10590488 (Version 3)
Quarter: 2016Q4

REPORT INFORMATION
  Report Type: Spontaneous
  Country: US (occurrence: US)
  Receive Date: 20141118
  Receipt Date: 20161205
  Transmission Date: 20170206
  Serious: Yes (Hospitalization, Other)
  Sender: FDA-Public Use
  Company Number: US-BAYER-2014-170247

PATIENT
  Age: 34 Year
  Sex: Female
  Weight: 72.56 kg

DRUGS (2)
  1. MIRENA [Suspect]
     Active Substance: LEVONORGESTREL
     Indication: CONTRACEPTION
     Dosage: 20 MCG/24HR, CONT
     Route: 015
     Dates: start: 20111114, end: 20130120
  2. MIRENA [Suspect]
     Active Substance: LEVONORGESTREL

REACTIONS (12)
  - Ruptured ectopic pregnancy [None]
  - Injury [None]
  - Ectopic pregnancy with contraceptive device [None]
  - Pelvic pain [None]
  - Device issue [None]
  - Depression [None]
  - Genital haemorrhage [None]
  - Pain [None]
  - Drug ineffective [None]
  - Emotional distress [None]
  - Anxiety [None]
  - Uterine perforation [None]

NARRATIVE: CASE EVENT DATE: 201301
